FAERS Safety Report 7548566-7 (Version None)
Quarter: 2011Q2

REPORT INFORMATION
  Report Type: 
  Country: None (occurrence: None)
  Receive Date: 20110524
  Receipt Date: 20110124
  Transmission Date: 20111010
  Serious: No
  Sender: FDA-Public Use
  Company Number: 026173

PATIENT
  Sex: Male
  Weight: 59 kg

DRUGS (5)
  1. METHOTREXATE [Concomitant]
  2. FOLIC ACID [Concomitant]
  3. CIMZIA [Suspect]
     Indication: CROHN'S DISEASE
     Dosage: (400 MG 1X/2 WEEKS SUBCUTANEOUS)
     Route: 058
     Dates: start: 20110104
  4. M.V.I. [Concomitant]
  5. ENTOCORT EC [Concomitant]

REACTIONS (2)
  - ORAL HERPES [None]
  - PYREXIA [None]
